FAERS Safety Report 17941894 (Version 1)
Quarter: 2020Q2

REPORT INFORMATION
  Report Type: Spontaneous
  Country: US (occurrence: US)
  Receive Date: 20200625
  Receipt Date: 20200625
  Transmission Date: 20200714
  Serious: No
  Sender: FDA-Public Use
  Company Number: US-SA-2020SA160879

PATIENT

DRUGS (1)
  1. AUBAGIO [Suspect]
     Active Substance: TERIFLUNOMIDE
     Indication: MULTIPLE SCLEROSIS
     Dosage: 14 MG, QD
     Route: 048
     Dates: start: 201712

REACTIONS (6)
  - Intervertebral disc protrusion [Unknown]
  - Decreased interest [Unknown]
  - Intervertebral disc degeneration [Unknown]
  - Cyst [Unknown]
  - Depressed mood [Unknown]
  - Neuralgia [Unknown]

NARRATIVE: CASE EVENT DATE: 202005
